FAERS Safety Report 6672960-X (Version None)
Quarter: 2010Q2

REPORT INFORMATION
  Report Type: 
  Country: None (occurrence: None)
  Receive Date: 20100408
  Receipt Date: 20100405
  Transmission Date: 20101027
  Serious: Yes (Other)
  Sender: FDA-Public Use
  Company Number: A0853486A

PATIENT
  Age: 55 Year
  Sex: Female

DRUGS (5)
  1. IMITREX [Suspect]
     Indication: MIGRAINE
     Route: 048
  2. PAXIL [Concomitant]
  3. ABILIFY [Concomitant]
  4. PROTONIX [Concomitant]
  5. MORPHINE SULFATE [Concomitant]

REACTIONS (11)
  - ASTHENIA [None]
  - CHEST PAIN [None]
  - FATIGUE [None]
  - FLUID RETENTION [None]
  - HYPERHIDROSIS [None]
  - HYPERTENSION [None]
  - OEDEMA PERIPHERAL [None]
  - PAIN OF SKIN [None]
  - SYNCOPE [None]
  - ULCER HAEMORRHAGE [None]
  - VOMITING [None]
